FAERS Safety Report 11644994 (Version 3)
Quarter: 2016Q1

REPORT INFORMATION
  Report Type: Report from Study
  Country: None (occurrence: PL)
  Receive Date: 20151020
  Receipt Date: 20160104
  Transmission Date: 20160525
  Serious: Yes (Hospitalization)
  Sender: FDA-Public Use
  Company Number: PL-MERZ NORTH AMERICA, INC.-15MRZ-00573

PATIENT
  Age: 53 Year
  Sex: Female
  Weight: 75 kg

DRUGS (17)
  1. ACARD [Concomitant]
     Active Substance: ASPIRIN
     Indication: CEREBROVASCULAR ACCIDENT
     Dosage: 75 MG (1 D)
     Route: 048
     Dates: start: 2009
  2. NAPROXEN SODIUM. [Concomitant]
     Active Substance: NAPROXEN SODIUM
     Indication: UPPER RESPIRATORY TRACT INFECTION
     Dosage: 550 MG (1 D)
     Route: 048
     Dates: start: 20150206, end: 20150216
  3. AVAMIS [Concomitant]
     Indication: UPPER RESPIRATORY TRACT INFECTION
     Dosage: 3 DOSE (1 DOSAGE FORMS, 1 D)
     Route: 045
     Dates: start: 20150206, end: 20150216
  4. IBUPROFEN. [Concomitant]
     Active Substance: IBUPROFEN
     Indication: UPPER RESPIRATORY TRACT INFECTION
     Dosage: 800 MG (1 D)
     Route: 048
     Dates: start: 20150126, end: 20150205
  5. CLAVULANIC ACID [Concomitant]
     Active Substance: CLAVULANIC ACID
     Indication: UPPER RESPIRATORY TRACT INFECTION
     Dosage: 250 MG (1 D)
     Route: 048
     Dates: start: 20150206, end: 20150216
  6. XEOMIN [Suspect]
     Active Substance: INCOBOTULINUMTOXINA
     Indication: SALIVARY HYPERSECRETION
     Dosage: 75 IU
     Dates: start: 20150914, end: 20150914
  7. XEOMIN [Suspect]
     Active Substance: INCOBOTULINUMTOXINA
     Dosage: 75 OR 100 IU
     Dates: start: 20150602, end: 20150702
  8. CAVINTON [Concomitant]
     Active Substance: VINPOCETINE
     Indication: CEREBROVASCULAR ACCIDENT
     Dosage: 30 MG (1 D)
     Route: 048
     Dates: start: 2009
  9. POLTRAM COMBO [Concomitant]
     Indication: ANALGESIC THERAPY
     Dosage: 375/50 MG (AS REQUIRED)
     Route: 048
     Dates: start: 2009
  10. TORVACARD [Concomitant]
     Active Substance: ATORVASTATIN CALCIUM
     Indication: HYPERLIPIDAEMIA
     Dosage: 40 MG (1 D)
     Route: 048
     Dates: start: 2009
  11. FLUOXETYNA [Concomitant]
     Indication: DEPRESSION
     Dosage: 20 MG (1 D)
     Route: 048
     Dates: start: 2009
  12. EUTHYROX [Concomitant]
     Active Substance: LEVOTHYROXINE SODIUM
     Indication: HYPOTHYROIDISM
     Dosage: 125 MCG (1 D)
     Route: 048
     Dates: start: 2009
  13. MEMOTROPIL [Concomitant]
     Indication: CEREBROVASCULAR ACCIDENT
     Dosage: 2400 MG (1 D)
     Route: 048
     Dates: start: 2009
  14. AMBROXOL [Concomitant]
     Active Substance: AMBROXOL
     Indication: UPPER RESPIRATORY TRACT INFECTION
     Dosage: 45 ML(1 D)
     Route: 048
     Dates: start: 20150126, end: 20150205
  15. AMOXICILLIN. [Concomitant]
     Active Substance: AMOXICILLIN
     Indication: UPPER RESPIRATORY TRACT INFECTION
     Dosage: 1750 MG (1 D)
     Route: 048
     Dates: start: 20150206, end: 20150216
  16. PERPHENAZINE. [Concomitant]
     Active Substance: PERPHENAZINE
     Indication: DEPRESSION
     Dosage: 25 MG (1 D)
     Route: 048
     Dates: start: 2009
  17. TEGRETOL [Concomitant]
     Active Substance: CARBAMAZEPINE
     Indication: CARPAL TUNNEL SYNDROME
     Dosage: 800 MG (1 D)
     Route: 048
     Dates: start: 201303

REACTIONS (2)
  - Speech disorder [Recovered/Resolved]
  - Cerebrovascular accident [Recovered/Resolved]

NARRATIVE: CASE EVENT DATE: 20150927
